FAERS Safety Report 6964491-4 (Version None)
Quarter: 2010Q3

REPORT INFORMATION
  Report Type: 
  Country: None (occurrence: None)
  Receive Date: 20100903
  Receipt Date: 20100824
  Transmission Date: 20110219
  Serious: Yes (Hospitalization, Other)
  Sender: FDA-Public Use
  Company Number: BR-PFIZER INC-2010106914

PATIENT
  Age: 60 Year
  Sex: Female

DRUGS (4)
  1. LIPITOR [Suspect]
     Indication: BLOOD CHOLESTEROL INCREASED
     Dosage: 40 MG, 1X/DAY
     Route: 048
     Dates: start: 20080402
  2. COSOPT [Concomitant]
     Dosage: UNK
     Dates: start: 20060101
  3. RAMIPRIL [Concomitant]
     Dosage: UNK
     Dates: start: 20070101
  4. DAFLON [Concomitant]
     Dosage: UNK
     Dates: start: 20070101

REACTIONS (3)
  - EYE LASER SURGERY [None]
  - INFARCTION [None]
  - LOW DENSITY LIPOPROTEIN INCREASED [None]
